FAERS Safety Report 20933526 (Version 3)
Quarter: 2022Q2

REPORT INFORMATION
  Report Type: Spontaneous
  Country: US (occurrence: US)
  Receive Date: 20220608
  Receipt Date: 20220617
  Transmission Date: 20220721
  Serious: Yes (Hospitalization)
  Sender: FDA-Public Use
  Company Number: US-BIOVITRUM-2022US07563

PATIENT
  Sex: Female

DRUGS (2)
  1. SYNAGIS [Suspect]
     Active Substance: PALIVIZUMAB
     Indication: Ventricular septal defect
     Route: 030
     Dates: start: 20220419
  2. SYNAGIS [Suspect]
     Active Substance: PALIVIZUMAB
     Indication: Trisomy 21

REACTIONS (1)
  - Poor feeding infant [Unknown]
